FAERS Safety Report 6431900-9 (Version None)
Quarter: 2009Q4

REPORT INFORMATION
  Report Type: 
  Country: None (occurrence: None)
  Receive Date: 20091109
  Receipt Date: 20091102
  Transmission Date: 20100525
  Serious: Yes (Hospitalization)
  Sender: FDA-Public Use
  Company Number: US-BIOGENIDEC-2009BI032549

PATIENT
  Age: 26 Year
  Sex: Female
  Weight: 123 kg

DRUGS (1)
  1. TYSABRI [Suspect]
     Indication: MULTIPLE SCLEROSIS
     Route: 042
     Dates: start: 20090720

REACTIONS (8)
  - CONSTIPATION [None]
  - DIARRHOEA [None]
  - FALL [None]
  - INFECTION [None]
  - MULTIPLE SCLEROSIS RELAPSE [None]
  - PYREXIA [None]
  - VITAMIN B12 DECREASED [None]
  - VULVOVAGINAL MYCOTIC INFECTION [None]
